FAERS Safety Report 8976346 (Version 2)
Quarter: 2013Q1

REPORT INFORMATION
  Report Type: Spontaneous
  Country: US (occurrence: US)
  Receive Date: 20121220
  Receipt Date: 20130102
  Transmission Date: 20140127
  Serious: Yes (Death)
  Sender: FDA-Public Use
  Company Number: US-PURDUE-USA-2012-0097048

PATIENT
  Age: 25 None
  Sex: Female
  Weight: 85.5 kg

DRUGS (12)
  1. DILAUDID TABLET [Suspect]
     Indication: PAIN
     Dosage: 2 MG, UNK
     Route: 048
  2. CINRYZE [Suspect]
     Indication: PROPHYLAXIS
     Dosage: 1000 UNIT, SEE TEXT
     Route: 042
     Dates: start: 20120720
  3. AMBIEN [Suspect]
     Indication: ANXIETY
     Dosage: 10 MG, UNK
     Route: 048
  4. EPIPEN [Concomitant]
     Indication: PRODUCT USED FOR UNKNOWN INDICATION
     Dosage: 0.3 MG, UNK
     Route: 065
  5. PRENATAL                           /02195401/ [Concomitant]
     Indication: SUPPLEMENTATION THERAPY
     Dosage: UNK TABLET, UNK
     Route: 048
  6. TUMS                               /00751519/ [Concomitant]
     Indication: PRODUCT USED FOR UNKNOWN INDICATION
     Route: 048
  7. PEPCID                             /00706001/ [Concomitant]
     Indication: GASTRITIS
     Dosage: UNK
     Route: 048
  8. FLONASE [Concomitant]
     Indication: PRODUCT USED FOR UNKNOWN INDICATION
     Dosage: UNK
     Route: 048
  9. TYLENOL /00020001/ [Concomitant]
     Indication: PRODUCT USED FOR UNKNOWN INDICATION
     Route: 065
  10. PHENERGAN                          /00033001/ [Concomitant]
     Indication: VOMITING
     Dosage: 12.5 MG, UNK
     Route: 048
  11. PROTONIX [Concomitant]
     Indication: GASTRITIS
     Dosage: 40 MG, UNK
     Route: 048
  12. IRON [Concomitant]
     Indication: PRODUCT USED FOR UNKNOWN INDICATION
     Dosage: UNK TABLET, UNK
     Route: 048

REACTIONS (3)
  - Acute respiratory failure [Fatal]
  - Bronchitis [Unknown]
  - Exposure during pregnancy [Unknown]
